FAERS Safety Report 7382677-4 (Version None)
Quarter: 2011Q1

REPORT INFORMATION
  Report Type: 
  Country: None (occurrence: None)
  Receive Date: 20110329
  Receipt Date: 20110315
  Transmission Date: 20110831
  Serious: Yes (Congenital Anomaly)
  Sender: FDA-Public Use
  Company Number: GB-MYLANLABS-2011S1003664

PATIENT
  Age: 1 Month
  Sex: Female
  Weight: 3.46 kg

DRUGS (5)
  1. FOLIC ACID [Suspect]
     Route: 064
  2. HYDROXOCOBALAMIN [Suspect]
     Route: 064
  3. ACETAMINOPHEN AND CODEINE PHOSPHATE [Suspect]
     Route: 064
  4. LYRICA [Suspect]
     Route: 064
  5. OMEPRAZOLE [Suspect]
     Route: 064

REACTIONS (3)
  - HIP DYSPLASIA [None]
  - PELVIC DEFORMITY [None]
  - DRUG EXPOSURE DURING PREGNANCY [None]
